FAERS Safety Report 4741046-3 (Version None)
Quarter: 2005Q3

REPORT INFORMATION
  Report Type: 
  Country: None (occurrence: None)
  Receive Date: 20050810
  Receipt Date: 20050608
  Transmission Date: 20060218
  Serious: No
  Sender: FDA-Public Use
  Company Number: US-GLAXOSMITHKLINE-A0561811A

PATIENT
  Age: 80 Year
  Sex: Female

DRUGS (5)
  1. PAXIL [Suspect]
     Indication: DEPRESSION
     Route: 048
  2. WELLBUTRIN [Suspect]
     Indication: DEPRESSION
     Dosage: 150MG PER DAY
     Route: 048
  3. PRILOSEC [Concomitant]
  4. VALIUM [Concomitant]
  5. ATIVAN [Concomitant]

REACTIONS (2)
  - DIZZINESS [None]
  - INSOMNIA [None]
